FAERS Safety Report 4383733-5 (Version None)
Quarter: 2004Q2

REPORT INFORMATION
  Report Type: 
  Country: None (occurrence: None)
  Receive Date: 20040608
  Receipt Date: 20030801
  Transmission Date: 20050107
  Serious: Yes (Other)
  Sender: FDA-Public Use
  Company Number: 200312660BCC

PATIENT
  Age: 57 Year
  Sex: Male
  Weight: 102.0593 kg

DRUGS (5)
  1. ALEVE [Suspect]
     Indication: LOCALISED OSTEOARTHRITIS
     Dosage: 220 MG, QD, ORAL
     Route: 048
     Dates: start: 20030701, end: 20030801
  2. ENALAPRIL MALEATE [Concomitant]
  3. HYDROCHLOROTHIAZIDE [Concomitant]
  4. GLUCOSAMINE W/CHONDROITIN SULFATES [Concomitant]
  5. NUTRAJOINT [Concomitant]

REACTIONS (1)
  - RECTAL HAEMORRHAGE [None]
